FAERS Safety Report 21787696 (Version 2)
Quarter: 2023Q1

REPORT INFORMATION
  Report Type: Spontaneous
  Country: JP (occurrence: JP)
  Receive Date: 20221228
  Receipt Date: 20230325
  Transmission Date: 20230418
  Serious: Yes (Other)
  Sender: FDA-Public Use
  Company Number: JP-CHUGAI-2022051557

PATIENT
  Age: 12 Year
  Sex: Male

DRUGS (1)
  1. AVASTIN [Suspect]
     Active Substance: BEVACIZUMAB
     Indication: Neurofibroma
     Dosage: 2 MILLIGRAM/KILOGRAM
     Route: 041

REACTIONS (2)
  - Tendon graft [Recovered/Resolved]
  - Off label use [Unknown]
